FAERS Safety Report 6971433-4 (Version None)
Quarter: 2010Q3

REPORT INFORMATION
  Report Type: 
  Country: None (occurrence: None)
  Receive Date: 20100908
  Receipt Date: 20100907
  Transmission Date: 20110219
  Serious: No
  Sender: FDA-Public Use
  Company Number: US-CEPHALON-2010004758

PATIENT
  Sex: Male

DRUGS (9)
  1. FENTORA [Suspect]
     Indication: MIGRAINE
     Route: 002
     Dates: start: 20080101
  2. FENTORA [Suspect]
     Indication: BACK PAIN
  3. FENTORA [Suspect]
     Indication: NECK PAIN
  4. OXYCODONE HCL [Concomitant]
     Indication: NECK PAIN
  5. OXYCODONE HCL [Concomitant]
     Indication: BACK PAIN
  6. OXYCODONE HCL [Concomitant]
     Indication: MIGRAINE
  7. HYDROCODONE [Concomitant]
     Indication: NECK PAIN
  8. HYDROCODONE [Concomitant]
     Indication: BACK PAIN
  9. HYDROCODONE [Concomitant]
     Indication: MIGRAINE

REACTIONS (1)
  - DRUG PRESCRIBING ERROR [None]
